FAERS Safety Report 10755597 (Version 1)
Quarter: 2015Q1

REPORT INFORMATION
  Report Type: Spontaneous
  Country: DE (occurrence: DE)
  Receive Date: 20150202
  Receipt Date: 20150202
  Transmission Date: 20150721
  Serious: Yes (Death)
  Sender: FDA-Public Use
  Company Number: DE-ABBVIE-15P-062-1340502-00

PATIENT
  Sex: Female

DRUGS (1)
  1. LEVODOPA/CARBIDOPA [Suspect]
     Active Substance: CARBIDOPA\LEVODOPA
     Indication: PARKINSON^S DISEASE
     Dosage: MD 8.0 ML, CRD 3.0 ML/HR, CRN 1.0 ML/HR, ED 1.5 ML
     Route: 050
     Dates: start: 20140626

REACTIONS (2)
  - Dysphagia [Fatal]
  - General physical health deterioration [Fatal]
